FAERS Safety Report 7651498-7 (Version None)
Quarter: 2011Q3

REPORT INFORMATION
  Report Type: 
  Country: None (occurrence: None)
  Receive Date: 20110802
  Receipt Date: 20110725
  Transmission Date: 20111222
  Serious: Yes (Hospitalization, Disabling)
  Sender: FDA-Public Use
  Company Number: PHHY2011CL67488

PATIENT
  Sex: Female

DRUGS (2)
  1. TRILEPTAL [Suspect]
     Indication: EPILEPSY
     Dosage: 1 DF, QD
  2. VALPAX [Concomitant]
     Dosage: UNK UKN, UNK

REACTIONS (2)
  - FALL [None]
  - UPPER LIMB FRACTURE [None]
